FAERS Safety Report 7452051-0 (Version None)
Quarter: 2011Q2

REPORT INFORMATION
  Report Type: 
  Country: None (occurrence: None)
  Receive Date: 20110502
  Receipt Date: 20110224
  Transmission Date: 20111010
  Serious: Yes (Hospitalization)
  Sender: FDA-Public Use
  Company Number: US-ACTELION-A-US2010-35387

PATIENT

DRUGS (6)
  1. LASIX [Concomitant]
  2. PREDNISONE [Concomitant]
  3. VENTAVIS [Suspect]
     Indication: PULMONARY ARTERIAL HYPERTENSION
     Dosage: UNK
     Route: 055
     Dates: start: 20091014
  4. VIAGRA [Concomitant]
  5. COUMADIN [Concomitant]
  6. TRACLEER [Suspect]
     Indication: PULMONARY ARTERIAL HYPERTENSION
     Dosage: UNK
     Route: 048
     Dates: start: 20070619

REACTIONS (8)
  - BLOOD SODIUM DECREASED [None]
  - INFECTION [None]
  - PNEUMONIA [None]
  - BLOOD POTASSIUM DECREASED [None]
  - HYPOTENSION [None]
  - FATIGUE [None]
  - DEHYDRATION [None]
  - SYNCOPE [None]
